FAERS Safety Report 25961328 (Version 1)
Quarter: 2025Q4

REPORT INFORMATION
  Report Type: Spontaneous
  Country: JP (occurrence: JP)
  Receive Date: 20251027
  Receipt Date: 20251027
  Transmission Date: 20260118
  Serious: Yes (Life-Threatening, Hospitalization)
  Sender: MERCK SHARP & DOHME LLC
  Company Number: JP-009507513-2342420

PATIENT
  Age: 75 Year
  Sex: Male
  Weight: 56.6 kg

DRUGS (3)
  1. KEYTRUDA [Suspect]
     Active Substance: PEMBROLIZUMAB
     Indication: Glioblastoma
     Route: 041
     Dates: start: 20250717, end: 20250813
  2. MAGMITT tablets 500 mg [Concomitant]
     Route: 048
     Dates: start: 20240228
  3. Pantethine Tablets 100 mg [Concomitant]
     Route: 048
     Dates: start: 20240419

REACTIONS (2)
  - Immune thrombocytopenia [Not Recovered/Not Resolved]
  - Aplastic anaemia [Not Recovered/Not Resolved]

NARRATIVE: CASE EVENT DATE: 20250903
